FAERS Safety Report 6840830-X (Version None)
Quarter: 2010Q3

REPORT INFORMATION
  Report Type: 
  Country: None (occurrence: None)
  Receive Date: 20100714
  Receipt Date: 20100705
  Transmission Date: 20110219
  Serious: Yes (Other)
  Sender: FDA-Public Use
  Company Number: BR-ABBOTT-08P-020-0454638-00

PATIENT
  Sex: Female
  Weight: 70 kg

DRUGS (11)
  1. HUMIRA [Suspect]
     Indication: RHEUMATOID ARTHRITIS
     Route: 058
     Dates: start: 20050101
  2. HUMIRA [Suspect]
  3. INDAPAMIDE W/PERINDOPRIL [Concomitant]
     Indication: HYPERTENSION
     Route: 048
     Dates: start: 19900101
  4. METHOTREXATE [Concomitant]
     Indication: RHEUMATOID ARTHRITIS
     Route: 048
     Dates: start: 20090901
  5. METHOTREXATE [Concomitant]
     Indication: SURGERY
     Route: 048
  6. OSCAL [Concomitant]
     Indication: BLOOD CALCIUM
     Route: 048
     Dates: start: 20090901
  7. OSCAL [Concomitant]
     Indication: SURGERY
  8. BONALEN [Concomitant]
     Indication: BLOOD CALCIUM
     Route: 048
  9. GINSENG W/ VITAMINS [Concomitant]
     Indication: ANAEMIA
     Route: 048
     Dates: start: 20090901
  10. SIMVASTATIN [Concomitant]
     Indication: BLOOD CHOLESTEROL
     Dosage: 0.5 IN 24 HOURS
     Route: 048
     Dates: start: 20091001
  11. ANTIHYPERTENSIVE DRUGS [Concomitant]
     Indication: HYPERTENSION

REACTIONS (6)
  - ANAEMIA [None]
  - BLOOD CHOLESTEROL INCREASED [None]
  - BONE EROSION [None]
  - INJECTION SITE PAIN [None]
  - PAIN IN EXTREMITY [None]
  - WEIGHT DECREASED [None]
